FAERS Safety Report 19804345 (Version 1)
Quarter: 2021Q3

REPORT INFORMATION
  Report Type: Spontaneous
  Country: US (occurrence: US)
  Receive Date: 20210908
  Receipt Date: 20210908
  Transmission Date: 20211014
  Serious: No
  Sender: FDA-Public Use
  Company Number: US-FARMAPROD-202105-0765

PATIENT
  Age: 77 Year
  Sex: Female

DRUGS (11)
  1. TRIAMTERENE. [Concomitant]
     Active Substance: TRIAMTERENE
  2. HUMALOG [Concomitant]
     Active Substance: INSULIN LISPRO
  3. OXERVATE [Suspect]
     Active Substance: CENEGERMIN-BKBJ
     Indication: NEUROTROPHIC KERATOPATHY
     Route: 047
     Dates: start: 20210511
  4. REFRESH CLASSIC [Concomitant]
     Active Substance: POLYVINYL ALCOHOL\POVIDONE
  5. EZETIMIBE. [Concomitant]
     Active Substance: EZETIMIBE
  6. RESTASIS [Concomitant]
     Active Substance: CYCLOSPORINE
  7. LIVALO [Concomitant]
     Active Substance: PITAVASTATIN CALCIUM
  8. LEVOTHYROXINE. [Concomitant]
     Active Substance: LEVOTHYROXINE
  9. TOUJEO MAX [Concomitant]
     Active Substance: INSULIN GLARGINE
  10. MULTIVITAMIN [Concomitant]
     Active Substance: VITAMINS
  11. OMEPRAZOLE. [Concomitant]
     Active Substance: OMEPRAZOLE

REACTIONS (2)
  - Wrong technique in product usage process [Recovered/Resolved]
  - Eye pain [Unknown]

NARRATIVE: CASE EVENT DATE: 202105
